FAERS Safety Report 6532653-6 (Version None)
Quarter: 2010Q1

REPORT INFORMATION
  Report Type: 
  Country: None (occurrence: None)
  Receive Date: 20100111
  Receipt Date: 20100105
  Transmission Date: 20100710
  Serious: Yes (Death, Hospitalization, Other)
  Sender: FDA-Public Use
  Company Number: US-ELI_LILLY_AND_COMPANY-US201001000729

PATIENT
  Sex: Male

DRUGS (1)
  1. BYETTA [Suspect]
     Dates: start: 20070701

REACTIONS (11)
  - GENERAL PHYSICAL HEALTH DETERIORATION [None]
  - HEPATIC NEOPLASM MALIGNANT [None]
  - LIVER INJURY [None]
  - NAUSEA [None]
  - PANCREATIC CARCINOMA [None]
  - PANCREATIC DISORDER [None]
  - PANCREATITIS [None]
  - PYREXIA [None]
  - RENAL DISORDER [None]
  - SKIN DISCOLOURATION [None]
  - WEIGHT DECREASED [None]
